FAERS Safety Report 14265012 (Version 3)
Quarter: 2018Q3

REPORT INFORMATION
  Report Type: Spontaneous
  Country: US (occurrence: US)
  Receive Date: 20171208
  Receipt Date: 20180906
  Transmission Date: 20181010
  Serious: Yes (Other)
  Sender: FDA-Public Use
  Company Number: US-PTC THERAPEUTICS, INC.-US-2017PTC001426

PATIENT

DRUGS (2)
  1. EMFLAZA [Suspect]
     Active Substance: DEFLAZACORT
     Indication: DUCHENNE MUSCULAR DYSTROPHY
     Dosage: 37.5 MG, QD
     Route: 048
     Dates: start: 20170731
  2. EMFLAZA [Suspect]
     Active Substance: DEFLAZACORT
     Dosage: 37.5 MG, QD
     Route: 048
     Dates: start: 20170822

REACTIONS (5)
  - Weight increased [Unknown]
  - Fall [Unknown]
  - Gait inability [Unknown]
  - Foot fracture [Unknown]
  - Patella fracture [Unknown]

NARRATIVE: CASE EVENT DATE: 2017
